FAERS Safety Report 13596739 (Version 1)
Quarter: 2017Q2

REPORT INFORMATION
  Report Type: Spontaneous
  Country: US (occurrence: US)
  Receive Date: 20170531
  Receipt Date: 20170531
  Transmission Date: 20170830
  Serious: No
  Sender: FDA-Public Use
  Company Number: US-PFIZER INC-2017236746

PATIENT
  Age: 64 Year
  Sex: Male

DRUGS (1)
  1. SUTENT [Suspect]
     Active Substance: SUNITINIB MALATE
     Indication: RENAL CANCER
     Dosage: 37.5 MG, CYCLIC (TAKE 1 CAPSULE DAILY FOR 2 WEEK TREATMENT FOLLOWED BY 1 WEEK REST)
     Route: 048
     Dates: start: 201507

REACTIONS (3)
  - Diarrhoea [Unknown]
  - Skin lesion [Unknown]
  - Hyperkeratosis [Unknown]
